FAERS Safety Report 6675550-8 (Version None)
Quarter: 2010Q2

REPORT INFORMATION
  Report Type: 
  Country: None (occurrence: None)
  Receive Date: 20100409
  Receipt Date: 20100203
  Transmission Date: 20101027
  Serious: Yes (Death)
  Sender: FDA-Public Use
  Company Number: PHHY2010ZA21552

PATIENT

DRUGS (1)
  1. VAA489A VAL_AML+TAB [Suspect]
     Dosage: UNK

REACTIONS (1)
  - BLADDER CANCER [None]
